FAERS Safety Report 12233297 (Version 1)
Quarter: 2016Q2

REPORT INFORMATION
  Report Type: Spontaneous
  Country: ES (occurrence: ES)
  Receive Date: 20160404
  Receipt Date: 20160404
  Transmission Date: 20160815
  Serious: Yes (Death)
  Sender: FDA-Public Use
  Company Number: ES-ROCHE-1735762

PATIENT
  Age: 80 Year
  Sex: Male

DRUGS (2)
  1. GAZYVARO [Suspect]
     Active Substance: OBINUTUZUMAB
     Indication: CHRONIC LYMPHOCYTIC LEUKAEMIA
     Dosage: GAZYVARO 1000MG/CICLO CONCENTRADO PARA SOLUCION PARA PERFUSION , 1 VIAL DE 4
     Route: 042
     Dates: start: 20160121, end: 20160218
  2. LEUKERAN [Concomitant]
     Active Substance: CHLORAMBUCIL
     Indication: CHRONIC LYMPHOCYTIC LEUKAEMIA
     Dosage: LEUKERAN 2 MG, 50 COMPRIMIDOS
     Route: 048
     Dates: start: 20160121

REACTIONS (2)
  - Cardiac failure [Fatal]
  - Condition aggravated [Fatal]

NARRATIVE: CASE EVENT DATE: 20160228
